FAERS Safety Report 5030651-5 (Version None)
Quarter: 2006Q2

REPORT INFORMATION
  Report Type: 
  Country: None (occurrence: None)
  Receive Date: 20060615
  Receipt Date: 20060601
  Transmission Date: 20061013
  Serious: Yes (Life-Threatening, Hospitalization)
  Sender: FDA-Public Use
  Company Number: 2006-143534-NL

PATIENT
  Age: 74 Year
  Sex: Male

DRUGS (14)
  1. DANAPAROID SODIUM [Suspect]
     Indication: DISSEMINATED INTRAVASCULAR COAGULATION
     Dosage: INTRAVENOUS DRIP
     Route: 041
     Dates: start: 20030119, end: 20060207
  2. IMIPENEM [Concomitant]
  3. ANTITHROMBIN III [Concomitant]
  4. IMMUNE GLOBULIN INTRAVENOUS (HUMAN) [Concomitant]
  5. MENATETRENONE [Concomitant]
  6. HYDROCORTISONE SODIUM PHOSPHATE [Concomitant]
  7. GABEXATE MESILATE [Concomitant]
  8. CLINDAMYCIN [Concomitant]
  9. CIPROFLOXACIN HYDROCHLORIDE [Concomitant]
  10. TEICOPLANIN [Concomitant]
  11. SIVELESTAT [Concomitant]
  12. IMMUNE GLOBULIN INTRAVENOUS (HUMAN) [Concomitant]
  13. CEFMETAZOLE SODIUM [Concomitant]
  14. AMPICILLIN [Concomitant]

REACTIONS (8)
  - ANAEMIA POSTOPERATIVE [None]
  - DISEASE PROGRESSION [None]
  - DISSEMINATED INTRAVASCULAR COAGULATION [None]
  - HEPATIC FUNCTION ABNORMAL [None]
  - MALNUTRITION [None]
  - POSTOPERATIVE INFECTION [None]
  - RENAL IMPAIRMENT [None]
  - WOUND HAEMORRHAGE [None]
